FAERS Safety Report 6779424-3 (Version None)
Quarter: 2010Q2

REPORT INFORMATION
  Report Type: 
  Country: None (occurrence: None)
  Receive Date: 20100618
  Receipt Date: 20100614
  Transmission Date: 20101027
  Serious: Yes (Other)
  Sender: FDA-Public Use
  Company Number: US-SANOFI-AVENTIS-2010SA034332

PATIENT
  Age: 82 Year
  Sex: Male

DRUGS (9)
  1. PLAVIX [Suspect]
     Indication: CARDIAC DISORDER
     Route: 048
  2. ASPIRIN [Suspect]
     Indication: CARDIAC DISORDER
     Route: 065
  3. LOVENOX [Suspect]
     Route: 065
  4. AMIODARONE [Concomitant]
  5. ALTACE [Concomitant]
  6. ARICEPT [Concomitant]
  7. COREG [Concomitant]
  8. FLOMAX [Concomitant]
  9. ZANTAC [Concomitant]

REACTIONS (2)
  - LACUNAR INFARCTION [None]
  - MUSCULAR WEAKNESS [None]
